FAERS Safety Report 8300085-6 (Version None)
Quarter: 2012Q2

REPORT INFORMATION
  Report Type: 
  Country: None (occurrence: None)
  Receive Date: 20120420
  Receipt Date: 20120416
  Transmission Date: 20120825
  Serious: No
  Sender: FDA-Public Use
  Company Number: US-PFIZER INC-2012094144

PATIENT
  Sex: Female
  Weight: 63.492 kg

DRUGS (2)
  1. LYRICA [Suspect]
     Indication: FIBROMYALGIA
     Dosage: 225 MG, 2X/DAY
     Route: 048
     Dates: start: 20080101, end: 20120414
  2. ELAVIL [Concomitant]
     Indication: SLEEP DISORDER
     Dosage: UNK

REACTIONS (3)
  - HYPOTENSION [None]
  - WITHDRAWAL SYNDROME [None]
  - HEART RATE DECREASED [None]
